FAERS Safety Report 8052099-1 (Version None)
Quarter: 2012Q1

REPORT INFORMATION
  Report Type: 
  Country: None (occurrence: None)
  Receive Date: 20120118
  Receipt Date: 20120113
  Transmission Date: 20120608
  Serious: No
  Sender: FDA-Public Use
  Company Number: US-PFIZER INC-2012010626

PATIENT
  Sex: Male

DRUGS (13)
  1. ATENOLOL [Concomitant]
     Dosage: UNK
  2. VENTOLIN [Concomitant]
     Dosage: UNK
  3. BUSPIRONE [Concomitant]
     Dosage: UNK
  4. DIAZEPAM [Concomitant]
     Dosage: UNK
  5. POTASSIUM PENICILLIN G [Suspect]
     Dosage: UNK
  6. MORPHINE [Concomitant]
     Dosage: UNK
  7. VITAMIN D [Concomitant]
     Dosage: UNK
  8. CELEXA [Concomitant]
     Dosage: UNK
  9. FUROSEMIDE [Concomitant]
     Dosage: UNK
  10. MELOXICAM [Concomitant]
     Dosage: UNK
  11. AVELOX [Concomitant]
     Dosage: UNK
  12. PROMETHAZINE [Concomitant]
     Dosage: UNK
  13. OXYCODONE [Concomitant]
     Dosage: UNK

REACTIONS (1)
  - DRUG HYPERSENSITIVITY [None]
